FAERS Safety Report 8810068 (Version 1)
Quarter: 2012Q4

REPORT INFORMATION
  Report Type: 
  Country: CN (occurrence: CN)
  Receive Date: 20120926
  Receipt Date: 20120926
  Transmission Date: 20130627
  Serious: Yes (Hospitalization, Other)
  Sender: FDA-Public Use
  Company Number: CN-GLAXOSMITHKLINE-B0832969A

PATIENT
  Age: 16 Year
  Sex: Male

DRUGS (1)
  1. LAMIVUDINE [Suspect]
     Indication: HEPATITIS B
     Dosage: .1G Per day
     Route: 048
     Dates: start: 20080101, end: 20110105

REACTIONS (2)
  - Schizophreniform disorder [Recovering/Resolving]
  - Schizophrenia [Recovering/Resolving]
